FAERS Safety Report 9664634 (Version 2)
Quarter: 2013Q4

REPORT INFORMATION
  Report Type: Spontaneous
  Country: US (occurrence: US)
  Receive Date: 20131101
  Receipt Date: 20131101
  Transmission Date: 20140711
  Serious: No
  Sender: FDA-Public Use
  Company Number: US-B.I. PHARMACEUTICALS,INC./RIDGEFIELD-2013-BI-28446BP

PATIENT
  Age: 55 Year
  Sex: Female
  Weight: 92.53 kg

DRUGS (10)
  1. COMBIVENT [Suspect]
     Indication: CHRONIC OBSTRUCTIVE PULMONARY DISEASE
     Dosage: DOSE PER APPLICATION: 20 MCG / 100 MCG; DAILY DOSE: 40 MCG/ 200 MCG
     Route: 055
     Dates: start: 201307
  2. FLOVENT INHALER [Concomitant]
     Indication: ASTHMA
     Route: 055
  3. OMEPRAZOLE [Concomitant]
     Indication: GASTROOESOPHAGEAL REFLUX DISEASE
     Dosage: 40 MG
     Route: 048
  4. ISOSORBIDE [Concomitant]
     Indication: HEART RATE INCREASED
     Dosage: 40 MG
     Route: 048
  5. LASIX [Concomitant]
     Indication: PULMONARY OEDEMA
     Dosage: 40 MG
     Route: 048
  6. FISH OIL [Concomitant]
     Route: 048
  7. VITAMIN D [Concomitant]
     Route: 048
  8. LOVASTATIN [Concomitant]
     Indication: BLOOD CHOLESTEROL INCREASED
     Dosage: 40 MG
     Route: 048
  9. ASPIRIN [Concomitant]
     Dosage: 325 MG
     Route: 048
  10. COQ10 [Concomitant]
     Route: 048

REACTIONS (3)
  - Cough [Not Recovered/Not Resolved]
  - Dyspnoea [Not Recovered/Not Resolved]
  - Product quality issue [Unknown]
